FAERS Safety Report 21340100 (Version 1)
Quarter: 2022Q3

REPORT INFORMATION
  Report Type: Spontaneous
  Country: CN (occurrence: CN)
  Receive Date: 20220916
  Receipt Date: 20220916
  Transmission Date: 20221026
  Serious: Yes (Other)
  Sender: FDA-Public Use
  Company Number: None

PATIENT
  Age: 26 Year
  Sex: Male
  Weight: 68 kg

DRUGS (6)
  1. CYCLOPHOSPHAMIDE [Suspect]
     Active Substance: CYCLOPHOSPHAMIDE
     Indication: Lymphocytic leukaemia
     Dosage: 1000MG, QD, DILUTED WITH 0.9% SODIUM CHLORIDE INJECTION 250 ML
     Route: 041
     Dates: start: 20220810, end: 20220810
  2. SODIUM CHLORIDE [Suspect]
     Active Substance: SODIUM CHLORIDE
     Indication: Medication dilution
     Dosage: 250ML, QD, DILUTED WITH CYCLOPHOSPHAMIDE FOR INJECTION 1000 MG
     Route: 041
     Dates: start: 20220810, end: 20220810
  3. SODIUM CHLORIDE [Suspect]
     Active Substance: SODIUM CHLORIDE
     Dosage: 250ML, QD, DILUTED WITH DAUNORUBICIN HYDROCHLORIDE FOR INJECTION 60 MG
     Route: 041
     Dates: start: 20220810, end: 20220812
  4. SODIUM CHLORIDE [Suspect]
     Active Substance: SODIUM CHLORIDE
     Dosage: 180ML, QD, DILUTED WITH VINCRISTINE SULFATE FOR INJECTION 1.8 MG
     Route: 041
     Dates: start: 20220810, end: 20220810
  5. DAUNORUBICIN HYDROCHLORIDE [Suspect]
     Active Substance: DAUNORUBICIN HYDROCHLORIDE
     Indication: Lymphocytic leukaemia
     Dosage: 60MG, QD, DILUTED WITH 0.9% SODIUM CHLORIDE INJECTION 250 ML
     Route: 041
     Dates: start: 20220810, end: 20220812
  6. VINCRISTINE SULFATE [Suspect]
     Active Substance: VINCRISTINE SULFATE
     Indication: Lymphocytic leukaemia
     Dosage: 1.8MG, QD, (DILUTED WITH SODIUM CHLORIDE INJECTION 180 ML)
     Route: 041
     Dates: start: 20220810, end: 20220810

REACTIONS (1)
  - Myelosuppression [Recovering/Resolving]

NARRATIVE: CASE EVENT DATE: 20220816
